FAERS Safety Report 21065297 (Version 1)
Quarter: 2022Q3

REPORT INFORMATION
  Report Type: Spontaneous
  Country: JP (occurrence: JP)
  Receive Date: 20220711
  Receipt Date: 20220711
  Transmission Date: 20221027
  Serious: Yes (Other)
  Sender: FDA-Public Use
  Company Number: JP-TAKEDA-2022TUS045604

PATIENT
  Age: 12 Year
  Sex: Female

DRUGS (3)
  1. INTUNIV [Suspect]
     Active Substance: GUANFACINE HYDROCHLORIDE
     Indication: Attention deficit hyperactivity disorder
     Dosage: 2 MILLIGRAM, QD
     Route: 048
  2. INTUNIV [Suspect]
     Active Substance: GUANFACINE HYDROCHLORIDE
     Dosage: 3 MILLIGRAM, QD
     Route: 048
     Dates: start: 202206, end: 202206
  3. INTUNIV [Suspect]
     Active Substance: GUANFACINE HYDROCHLORIDE
     Dosage: UNK
     Route: 048

REACTIONS (1)
  - Depressed level of consciousness [Recovered/Resolved]
